FAERS Safety Report 25210499 (Version 2)
Quarter: 2025Q2

REPORT INFORMATION
  Report Type: Spontaneous
  Country: US (occurrence: US)
  Receive Date: 20250417
  Receipt Date: 20250516
  Transmission Date: 20250716
  Serious: No
  Sender: PFIZER
  Company Number: US-PFIZER INC-202500075170

PATIENT
  Age: 14 Year
  Sex: Male
  Weight: 50.2 kg

DRUGS (2)
  1. GENOTROPIN [Suspect]
     Active Substance: SOMATROPIN
     Indication: Hypopituitarism
     Dosage: 2 MG/DAY 7 DAYS/WEEK
  2. GENOTROPIN [Suspect]
     Active Substance: SOMATROPIN
     Indication: Growth hormone deficiency
     Dosage: 1.9 MG, DAILY
     Route: 058
     Dates: start: 202411

REACTIONS (6)
  - Product prescribing error [Unknown]
  - Insulin-like growth factor decreased [Unknown]
  - Sex hormone binding globulin increased [Unknown]
  - White blood cell count decreased [Unknown]
  - Bone density decreased [Unknown]
  - Cortisol increased [Unknown]

NARRATIVE: CASE EVENT DATE: 20241101
